FAERS Safety Report 22061507 (Version 1)
Quarter: 2023Q1

REPORT INFORMATION
  Report Type: Spontaneous
  Country: CA (occurrence: CA)
  Receive Date: 20230304
  Receipt Date: 20230304
  Transmission Date: 20230417
  Serious: Yes (Other)
  Sender: FDA-Public Use
  Company Number: CA-CELLTRION INC.-2022CA012668

PATIENT

DRUGS (10)
  1. INFLECTRA [Suspect]
     Active Substance: INFLIXIMAB-DYYB
     Indication: Crohn^s disease
     Dosage: 5 MG/KG, INDUCTION WEEKS 0, 2 AND 6 THEN MAINTENANCE EVERY 8 WEEKS
     Route: 042
     Dates: start: 20200706
  2. INFLECTRA [Suspect]
     Active Substance: INFLIXIMAB-DYYB
     Dosage: 5 MG/KG, INDUCTION WEEKS 0, 2 AND 6 THEN MAINTENANCE EVERY 8 WEEKS
     Route: 042
     Dates: start: 20220720
  3. INFLECTRA [Suspect]
     Active Substance: INFLIXIMAB-DYYB
     Dosage: 5 MG/KG, INDUCTION WEEKS 0, 2 AND 6 THEN MAINTENANCE EVERY 8 WEEKS
     Route: 042
     Dates: start: 20220909
  4. INFLECTRA [Suspect]
     Active Substance: INFLIXIMAB-DYYB
     Dosage: 5 MG/KG, INDUCTION WEEKS 0, 2 AND 6 THEN MAINTENANCE EVERY 8 WEEKS
     Route: 042
     Dates: start: 20221103
  5. INFLECTRA [Suspect]
     Active Substance: INFLIXIMAB-DYYB
     Dosage: 5 MG/KG, INDUCTION WEEKS 0, 2 AND 6 THEN MAINTENANCE EVERY 8 WEEKS
     Route: 042
     Dates: start: 20221229
  6. INFLECTRA [Suspect]
     Active Substance: INFLIXIMAB-DYYB
     Dosage: 5 MG/KG, INDUCTION WEEKS 0, 2 AND 6 THEN MAINTENANCE EVERY 8 WEEKS
     Route: 042
     Dates: start: 20230223
  7. INFLECTRA [Suspect]
     Active Substance: INFLIXIMAB-DYYB
     Dosage: 5 MG/KG, INDUCTION WEEKS 0, 2 AND 6 THEN MAINTENANCE EVERY 8 WEEKS
     Route: 042
     Dates: start: 20230223
  8. ASPIRIN [Concomitant]
     Active Substance: ASPIRIN
     Dosage: 1 DF, DOSAGE INFORMATION NOT AVAILABLE
     Route: 065
  9. CALCIUM [Concomitant]
     Active Substance: CALCIUM
     Dosage: 1 DF, DOSAGE INFORMATION NOT AVAILABLE
     Route: 065
  10. IRON [Concomitant]
     Active Substance: IRON
     Dosage: 1 DF, DOSAGE INFORMATION NOT AVAILABLE
     Route: 065

REACTIONS (9)
  - Hypertension [Not Recovered/Not Resolved]
  - Poor venous access [Not Recovered/Not Resolved]
  - Blood pressure fluctuation [Unknown]
  - Condition aggravated [Not Recovered/Not Resolved]
  - Heart rate decreased [Not Recovered/Not Resolved]
  - Diarrhoea [Unknown]
  - Abdominal pain [Unknown]
  - Off label use [Unknown]
  - Inappropriate schedule of product administration [Unknown]

NARRATIVE: CASE EVENT DATE: 20220720
